FAERS Safety Report 11517733 (Version 1)
Quarter: 2015Q3

REPORT INFORMATION
  Report Type: Spontaneous
  Country: US (occurrence: None)
  Receive Date: 20150916
  Receipt Date: 20150916
  Transmission Date: 20151125
  Serious: Yes (Hospitalization, Disabling)
  Sender: FDA-Public Use
  Company Number: None

PATIENT

DRUGS (1)
  1. DEPAKOTE [Suspect]
     Active Substance: DIVALPROEX SODIUM
     Dates: start: 1998, end: 2013

REACTIONS (4)
  - Vomiting [None]
  - Liver disorder [None]
  - Swelling [None]
  - Dizziness [None]

NARRATIVE: CASE EVENT DATE: 20131112
